FAERS Safety Report 7250966-X (Version None)
Quarter: 2011Q1

REPORT INFORMATION
  Report Type: 
  Country: None (occurrence: None)
  Receive Date: 20110128
  Receipt Date: 20110124
  Transmission Date: 20110831
  Serious: Yes (Congenital Anomaly)
  Sender: FDA-Public Use
  Company Number: A0909865A

PATIENT
  Sex: Male
  Weight: 3.5 kg

DRUGS (3)
  1. TYLENOL-500 [Concomitant]
  2. PAXIL [Suspect]
     Indication: ANXIETY
     Route: 064
  3. PRENATAL VITAMINS [Concomitant]

REACTIONS (5)
  - BODY HEIGHT BELOW NORMAL [None]
  - HYPERCALCAEMIA [None]
  - ATRIAL SEPTAL DEFECT [None]
  - DRUG EXPOSURE DURING PREGNANCY [None]
  - CONGENITAL PULMONARY HYPERTENSION [None]
